FAERS Safety Report 10619075 (Version 1)
Quarter: 2014Q4

REPORT INFORMATION
  Report Type: Report from Study
  Country: AR (occurrence: AR)
  Receive Date: 20141202
  Receipt Date: 20141202
  Transmission Date: 20150529
  Serious: Yes (Death, Other)
  Sender: FDA-Public Use
  Company Number: PHHY2014AR156470

PATIENT
  Age: 94 Year
  Sex: Female

DRUGS (2)
  1. DIOVAN [Suspect]
     Active Substance: VALSARTAN
     Dosage: 1 DF, QD
     Route: 048
  2. DIOVAN [Suspect]
     Active Substance: VALSARTAN
     Indication: HYPERTENSION
     Dosage: 1 DF, QD
     Route: 048
     Dates: end: 201408

REACTIONS (5)
  - Myocardial infarction [Fatal]
  - Dyspnoea exertional [Fatal]
  - Blood pressure abnormal [Unknown]
  - Pneumonitis [Unknown]
  - Dehydration [Unknown]

NARRATIVE: CASE EVENT DATE: 201406
